FAERS Safety Report 21120243 (Version 3)
Quarter: 2022Q4

REPORT INFORMATION
  Report Type: Spontaneous
  Country: CO (occurrence: CO)
  Receive Date: 20220722
  Receipt Date: 20221017
  Transmission Date: 20230113
  Serious: Yes (Other)
  Sender: FDA-Public Use
  Company Number: CO-PFIZER INC-PV202200019172

PATIENT
  Age: 12 Year
  Sex: Male

DRUGS (1)
  1. GENOTROPIN [Suspect]
     Active Substance: SOMATROPIN
     Dosage: 1.4 MG, UNSPECIFIED FRECUENCY
     Route: 058

REACTIONS (4)
  - Drug ineffective [Unknown]
  - Device difficult to use [Unknown]
  - Incorrect product administration duration [Unknown]
  - Device failure [Unknown]

NARRATIVE: CASE EVENT DATE: 20220301
